FAERS Safety Report 9743211 (Version 1)
Quarter: 2013Q4

REPORT INFORMATION
  Report Type: Spontaneous
  Country: US (occurrence: US)
  Receive Date: 20131210
  Receipt Date: 20131210
  Transmission Date: 20140711
  Serious: No
  Sender: FDA-Public Use
  Company Number: US-GILEAD-2009-0025014

PATIENT
  Sex: Female
  Weight: 84.82 kg

DRUGS (17)
  1. LETAIRIS [Suspect]
     Indication: PULMONARY ARTERIAL HYPERTENSION
     Route: 048
     Dates: start: 20091021
  2. COZAAR [Concomitant]
  3. ASPIRIN [Concomitant]
  4. SPIRONOLACTONE [Concomitant]
  5. REVATIO [Concomitant]
  6. ALBUTEROL [Concomitant]
  7. SPIRIVA [Concomitant]
  8. XOPENEX [Concomitant]
  9. CYMBALTA [Concomitant]
  10. BACLOFEN [Concomitant]
  11. PREDNISONE [Concomitant]
  12. DIPHENHYDRAMINE [Concomitant]
  13. POTASSIUM CHLORIDE [Concomitant]
  14. MAGNESIUM OXIDE [Concomitant]
  15. VITAMIN D3 [Concomitant]
  16. CALCIUM [Concomitant]
  17. OMEGA 3 [Concomitant]

REACTIONS (2)
  - Dyspnoea [Unknown]
  - Chest discomfort [Unknown]
